FAERS Safety Report 16505452 (Version 2)
Quarter: 2019Q3

REPORT INFORMATION
  Report Type: Spontaneous
  Country: US (occurrence: US)
  Receive Date: 20190701
  Receipt Date: 20190909
  Transmission Date: 20191004
  Serious: Yes (Other)
  Sender: FDA-Public Use
  Company Number: US-SA-2019SA169528

PATIENT
  Age: 61 Year
  Sex: Female
  Weight: 107 kg

DRUGS (9)
  1. TAXOTERE [Suspect]
     Active Substance: DOCETAXEL
     Indication: BREAST CANCER FEMALE
     Dosage: 168 MG, Q3W
     Route: 042
     Dates: start: 20161024, end: 20161024
  2. LEVOTHYROXINE. [Concomitant]
     Active Substance: LEVOTHYROXINE
     Dosage: UNK
     Dates: start: 20140131
  3. GLIPIZIDE. [Concomitant]
     Active Substance: GLIPIZIDE
  4. FOLIC ACID. [Concomitant]
     Active Substance: FOLIC ACID
     Dosage: UNK
     Dates: start: 20140131
  5. HYDROCODONE [Concomitant]
     Active Substance: HYDROCODONE
  6. CITALOPRAM [Concomitant]
     Active Substance: CITALOPRAM HYDROBROMIDE
  7. TRIAMTERENE. [Concomitant]
     Active Substance: TRIAMTERENE
  8. TAXOTERE [Suspect]
     Active Substance: DOCETAXEL
     Dosage: 168 MG, Q3W
     Route: 042
     Dates: start: 20161228, end: 20161228
  9. NEOSAR [Concomitant]
     Active Substance: CYCLOPHOSPHAMIDE
     Indication: BREAST CANCER FEMALE
     Dosage: 1344 MG

REACTIONS (1)
  - Alopecia [Recovering/Resolving]

NARRATIVE: CASE EVENT DATE: 201701
